FAERS Safety Report 16185741 (Version 2)
Quarter: 2019Q2

REPORT INFORMATION
  Report Type: Spontaneous
  Country: US (occurrence: US)
  Receive Date: 20190411
  Receipt Date: 20190414
  Transmission Date: 20190711
  Serious: No
  Sender: FDA-Public Use
  Company Number: US-009507513-1904USA004367

PATIENT
  Age: 34 Year
  Sex: Female
  Weight: 71.66 kg

DRUGS (2)
  1. NEXPLANON [Suspect]
     Active Substance: ETONOGESTREL
     Dosage: 1 IMPLANT
     Route: 059
     Dates: start: 20181218
  2. NEXPLANON [Suspect]
     Active Substance: ETONOGESTREL
     Dosage: UNK
     Route: 059
     Dates: end: 20181218

REACTIONS (5)
  - Implant site pruritus [Unknown]
  - Device breakage [Unknown]
  - Discomfort [Unknown]
  - Implant site scar [Unknown]
  - Implant site irritation [Unknown]

NARRATIVE: CASE EVENT DATE: 20190301
